FAERS Safety Report 5313775-4 (Version None)
Quarter: 2007Q2

REPORT INFORMATION
  Report Type: 
  Country: None (occurrence: None)
  Receive Date: 20070426
  Receipt Date: 20070412
  Transmission Date: 20071010
  Serious: Yes (Hospitalization)
  Sender: FDA-Public Use
  Company Number: T200700423

PATIENT
  Age: 56 Year
  Sex: Female

DRUGS (1)
  1. TOFRANIL [Suspect]
     Indication: BIPOLAR DISORDER
     Dosage: 20 MG, QD
     Dates: start: 19760101, end: 19880301

REACTIONS (9)
  - CONGESTIVE CARDIOMYOPATHY [None]
  - CREPITATIONS [None]
  - EJECTION FRACTION DECREASED [None]
  - ELECTROCARDIOGRAM T WAVE INVERSION [None]
  - HEART RATE INCREASED [None]
  - HEPATOJUGULAR REFLUX [None]
  - HYPOKINESIA [None]
  - OEDEMA PERIPHERAL [None]
  - PULMONARY OEDEMA [None]
